FAERS Safety Report 12379651 (Version 2)
Quarter: 2016Q3

REPORT INFORMATION
  Report Type: Spontaneous
  Country: CH (occurrence: CH)
  Receive Date: 20160518
  Receipt Date: 20160722
  Transmission Date: 20161109
  Serious: Yes (Life-Threatening, Other)
  Sender: FDA-Public Use
  Company Number: CH-AMGEN-CHESP2016060300

PATIENT
  Age: 76 Year
  Sex: Male
  Weight: 95 kg

DRUGS (9)
  1. CALCIMAGONA D3 [Concomitant]
     Indication: OSTEOPOROSIS
     Dosage: 1000 MG, QD
  2. NPLATE [Suspect]
     Active Substance: ROMIPLOSTIM
     Indication: IMMUNE THROMBOCYTOPENIC PURPURA
     Dosage: 500 MUG, QWK
     Route: 065
     Dates: start: 20160406
  3. NPLATE [Suspect]
     Active Substance: ROMIPLOSTIM
     Dosage: 1000 MUG, UNK
     Route: 065
     Dates: start: 20160414
  4. SPIRICORT [Concomitant]
     Active Substance: PREDNISOLONE
     Indication: IMMUNE THROMBOCYTOPENIC PURPURA
     Dosage: 50 MG, QD
     Route: 048
     Dates: start: 20160411
  5. METFORMIN-MEPHA [Concomitant]
     Dosage: 500 MG, QD
     Route: 048
     Dates: start: 20160401
  6. PANTOPRAZOL SANDOZ [Concomitant]
     Indication: PROPHYLAXIS
  7. TRANSIPEG [Concomitant]
     Active Substance: POLYETHYLENE GLYCOL 3350
     Dosage: 1 DF, QD
  8. CALCIMAGONA D3 [Concomitant]
     Indication: PROPHYLAXIS
  9. PANTOPRAZOL SANDOZ [Concomitant]
     Indication: GASTRIC ULCER
     Dosage: 40 MG, QD
     Route: 048
     Dates: start: 20160329

REACTIONS (1)
  - Pulmonary embolism [Recovering/Resolving]

NARRATIVE: CASE EVENT DATE: 20160426
